FAERS Safety Report 7793525-2 (Version None)
Quarter: 2011Q4

REPORT INFORMATION
  Report Type: 
  Country: None (occurrence: None)
  Receive Date: 20111003
  Receipt Date: 20110930
  Transmission Date: 20120403
  Serious: Yes (Hospitalization, Disabling, Other)
  Sender: FDA-Public Use
  Company Number: US-BAYER-2011-056529

PATIENT
  Age: 58 Year
  Sex: Female

DRUGS (1)
  1. BETASERON [Suspect]
     Indication: RELAPSING-REMITTING MULTIPLE SCLEROSIS
     Dosage: 8 MIU, QOD
     Route: 058
     Dates: start: 20110511, end: 20110719

REACTIONS (11)
  - ABASIA [None]
  - BLOOD PRESSURE DECREASED [None]
  - PALPITATIONS [None]
  - RENAL IMPAIRMENT [None]
  - ASTHENIA [None]
  - GAIT DISTURBANCE [None]
  - AUTONOMIC NERVOUS SYSTEM IMBALANCE [None]
  - BLOOD PRESSURE FLUCTUATION [None]
  - URINARY TRACT INFECTION [None]
  - LIP INJURY [None]
  - FALL [None]
